FAERS Safety Report 26193630 (Version 1)
Quarter: 2025Q4

REPORT INFORMATION
  Report Type: Spontaneous
  Country: KR (occurrence: KR)
  Receive Date: 20251224
  Receipt Date: 20251224
  Transmission Date: 20260117
  Serious: Yes (Other)
  Sender: Kenvue
  Company Number: KR-KENVUE-20251207693

PATIENT
  Age: 7 Decade

DRUGS (2)
  1. ACETAMINOPHEN [Suspect]
     Active Substance: ACETAMINOPHEN
     Indication: Pyrexia
     Dosage: 1 GRAM, ONCE A DAY
     Route: 065
  2. TYLENOL 8HR [Suspect]
     Active Substance: ACETAMINOPHEN
     Indication: Pyrexia
     Dosage: 1300 MILLIGRAM, ONCE A DAY
     Route: 065

REACTIONS (1)
  - Hypotension [Recovered/Resolved]
